FAERS Safety Report 8106389-4 (Version None)
Quarter: 2012Q1

REPORT INFORMATION
  Report Type: 
  Country: None (occurrence: None)
  Receive Date: 20120202
  Receipt Date: 20120127
  Transmission Date: 20120608
  Serious: Yes (Other)
  Sender: FDA-Public Use
  Company Number: US-JNJFOC-20111201116

PATIENT
  Sex: Male
  Weight: 145.15 kg

DRUGS (2)
  1. STELARA [Suspect]
     Indication: PSORIASIS
     Route: 058
     Dates: start: 20111215
  2. STELARA [Suspect]
     Route: 058
     Dates: start: 20100217

REACTIONS (2)
  - EOSINOPHILIA [None]
  - INAPPROPRIATE SCHEDULE OF DRUG ADMINISTRATION [None]
